FAERS Safety Report 8174063-4 (Version None)
Quarter: 2012Q1

REPORT INFORMATION
  Report Type: 
  Country: None (occurrence: None)
  Receive Date: 20120229
  Receipt Date: 20120222
  Transmission Date: 20120608
  Serious: Yes (Hospitalization)
  Sender: FDA-Public Use
  Company Number: JP-ROCHE-1043613

PATIENT
  Age: 77 Year
  Sex: Male

DRUGS (5)
  1. PREDNISOLONE [Concomitant]
     Indication: ERYTHEMA NODOSUM
     Dosage: DOSAGE IS UNCERTAIN.
     Route: 048
     Dates: start: 20100901
  2. ACTEMRA [Suspect]
     Indication: ERYTHEMA NODOSUM
     Route: 041
     Dates: start: 20100101
  3. INSULIN [Concomitant]
     Indication: TYPE 2 DIABETES MELLITUS
     Dosage: DOSAGE IS UNCERTAIN.
     Route: 058
     Dates: start: 20100101
  4. SULFASALAZINE [Concomitant]
     Indication: ERYTHEMA NODOSUM
     Route: 048
  5. COLCHICINE [Concomitant]
     Indication: ERYTHEMA NODOSUM
     Route: 048

REACTIONS (2)
  - BACTERIAL INFECTION [None]
  - PANNICULITIS [None]
